FAERS Safety Report 16635001 (Version 1)
Quarter: 2019Q3

REPORT INFORMATION
  Report Type: Spontaneous
  Country: US (occurrence: US)
  Receive Date: 20190726
  Receipt Date: 20190726
  Transmission Date: 20191004
  Serious: Yes (Hospitalization)
  Sender: FDA-Public Use
  Company Number: US-EMMAUS MEDICAL, INC.-EMM201904-000148

PATIENT
  Sex: Female

DRUGS (2)
  1. ENDARI [Suspect]
     Active Substance: GLUTAMINE
     Indication: HAEMOGLOBIN C DISEASE
     Route: 048
     Dates: start: 20181023
  2. FOLIC ACID. [Concomitant]
     Active Substance: FOLIC ACID
     Indication: PRODUCT USED FOR UNKNOWN INDICATION

REACTIONS (5)
  - Dizziness [Unknown]
  - Nausea [Unknown]
  - Headache [Unknown]
  - Gastroenteritis viral [Not Recovered/Not Resolved]
  - Sickle cell anaemia with crisis [Unknown]
